FAERS Safety Report 7158918-5 (Version None)
Quarter: 2010Q4

REPORT INFORMATION
  Report Type: 
  Country: None (occurrence: None)
  Receive Date: 20101214
  Receipt Date: 20101207
  Transmission Date: 20110411
  Serious: Yes (Other)
  Sender: FDA-Public Use
  Company Number: US-SANOFI-AVENTIS-2010SA067456

PATIENT
  Age: 56 Year
  Sex: Male

DRUGS (4)
  1. LANTUS [Suspect]
     Dosage: DOSE:23 UNIT(S)
     Route: 058
  2. LANTUS [Suspect]
     Route: 058
  3. OPTICLICK [Suspect]
  4. OPTICLICK [Suspect]

REACTIONS (3)
  - BLINDNESS [None]
  - RENAL TRANSPLANT [None]
  - VISUAL ACUITY REDUCED [None]
